FAERS Safety Report 8531210-X (Version None)
Quarter: 2012Q3

REPORT INFORMATION
  Report Type: 
  Country: None (occurrence: None)
  Receive Date: 20120723
  Receipt Date: 20120710
  Transmission Date: 20120928
  Serious: Yes (Other)
  Sender: FDA-Public Use
  Company Number: US-ELI_LILLY_AND_COMPANY-US201207003843

PATIENT
  Age: 75 Year
  Sex: Male

DRUGS (1)
  1. CYMBALTA [Suspect]
     Indication: PAIN
     Dosage: 60 MG, BID
     Dates: start: 20110901

REACTIONS (1)
  - RENAL IMPAIRMENT [None]
